FAERS Safety Report 17842405 (Version 6)
Quarter: 2020Q2

REPORT INFORMATION
  Report Type: Report from Study
  Country: US (occurrence: US)
  Receive Date: 20200529
  Receipt Date: 20200630
  Transmission Date: 20200714
  Serious: Yes (Hospitalization, Other)
  Sender: FDA-Public Use
  Company Number: US-ACTELION-A-NJ2019-195901

PATIENT
  Age: 38 Year
  Sex: Female
  Weight: 63.95 kg

DRUGS (4)
  1. VELETRI [Suspect]
     Active Substance: EPOPROSTENOL
     Indication: PULMONARY ARTERIAL HYPERTENSION
     Dosage: 16 NG/KG, PER MIN
     Route: 042
  2. VELETRI [Suspect]
     Active Substance: EPOPROSTENOL
     Dosage: 17 NG/KG, PER MIN
     Route: 042
  3. OPSUMIT [Suspect]
     Active Substance: MACITENTAN
     Indication: PULMONARY ARTERIAL HYPERTENSION
     Dosage: 10 MG, QD
     Route: 048
  4. SILDENAFIL CITRATE. [Concomitant]
     Active Substance: SILDENAFIL CITRATE

REACTIONS (14)
  - Catheter management [Unknown]
  - Device related infection [Unknown]
  - Device dislocation [Recovered/Resolved]
  - Fatigue [Unknown]
  - Catheter site erythema [Unknown]
  - Abdominal discomfort [Unknown]
  - Product administered at inappropriate site [Recovered/Resolved]
  - Skin disorder [Unknown]
  - Device related sepsis [Unknown]
  - Catheter site swelling [Unknown]
  - Catheter site discharge [Unknown]
  - Catheter site vesicles [Unknown]
  - Catheter site irritation [Unknown]
  - Dyspnoea [Unknown]

NARRATIVE: CASE EVENT DATE: 20200404
